FAERS Safety Report 16269435 (Version 1)
Quarter: 2019Q2

REPORT INFORMATION
  Report Type: Spontaneous
  Country: US (occurrence: US)
  Receive Date: 20190502
  Receipt Date: 20190502
  Transmission Date: 20190711
  Serious: Yes (Other)
  Sender: FDA-Public Use
  Company Number: None

PATIENT
  Age: 56 Year
  Sex: Male
  Weight: 92.25 kg

DRUGS (2)
  1. TOPIRAMATE. [Suspect]
     Active Substance: TOPIRAMATE
     Indication: CRANIOCEREBRAL INJURY
     Route: 048
     Dates: start: 20190327, end: 20190405
  2. TOPIRAMATE. [Suspect]
     Active Substance: TOPIRAMATE
     Indication: HEADACHE
     Route: 048
     Dates: start: 20190327, end: 20190405

REACTIONS (3)
  - Drug hypersensitivity [None]
  - Peripheral swelling [None]
  - Product substitution issue [None]

NARRATIVE: CASE EVENT DATE: 20190328
